FAERS Safety Report 16321681 (Version 1)
Quarter: 2019Q2

REPORT INFORMATION
  Report Type: Spontaneous
  Country: US (occurrence: US)
  Receive Date: 20190516
  Receipt Date: 20190516
  Transmission Date: 20190711
  Serious: Yes (Other)
  Sender: FDA-Public Use
  Company Number: US-JNJFOC-20190504510

PATIENT

DRUGS (1)
  1. EVICEL [Suspect]
     Active Substance: FIBRINOGEN HUMAN\THROMBIN HUMAN
     Indication: HAEMOSTASIS
     Route: 061

REACTIONS (11)
  - Insomnia [Unknown]
  - Hypomagnesaemia [Unknown]
  - Tachycardia [Unknown]
  - Hypotension [Unknown]
  - Anaemia [Unknown]
  - Hypokalaemia [Unknown]
  - Nausea [Unknown]
  - Pruritus [Unknown]
  - Pyrexia [Unknown]
  - Vomiting [Unknown]
  - Hypertension [Unknown]
